FAERS Safety Report 4645871-9 (Version None)
Quarter: 2005Q2

REPORT INFORMATION
  Report Type: 
  Country: None (occurrence: None)
  Receive Date: 20050425
  Receipt Date: 20050412
  Transmission Date: 20051028
  Serious: Yes (Other)
  Sender: FDA-Public Use
  Company Number: HQWYE018414APR05

PATIENT
  Age: 51 Year
  Sex: Male

DRUGS (7)
  1. RAPAMUNE [Suspect]
  2. CELLCEPT [Concomitant]
  3. MEDROL [Concomitant]
  4. NIFEDIPINE [Concomitant]
  5. LEXAPRO [Concomitant]
  6. BACTRIM (SULFAMETHOXAZOLE/TRIMETHOOPRIM) [Concomitant]
  7. LASIX [Concomitant]

REACTIONS (2)
  - PNEUMONITIS [None]
  - PULMONARY ALVEOLAR HAEMORRHAGE [None]
